FAERS Safety Report 8879438 (Version 1)
Quarter: 2012Q4

REPORT INFORMATION
  Report Type: 
  Country: US (occurrence: US)
  Receive Date: 20121101
  Receipt Date: 20121101
  Transmission Date: 20130627
  Serious: No
  Sender: FDA-Public Use
  Company Number: US-BIOGENIDEC-2012BI048061

PATIENT
  Age: 23 None
  Sex: Female

DRUGS (1)
  1. AVONEX [Suspect]
     Indication: MULTIPLE SCLEROSIS
     Route: 030
     Dates: start: 20120724

REACTIONS (5)
  - Pollakiuria [Recovered/Resolved]
  - Constipation [Recovered/Resolved]
  - Neurological examination abnormal [Unknown]
  - Paralysis [Unknown]
  - Multiple sclerosis relapse [Recovered/Resolved]
